FAERS Safety Report 6043362-4 (Version None)
Quarter: 2009Q1

REPORT INFORMATION
  Report Type: 
  Country: None (occurrence: None)
  Receive Date: 20090120
  Receipt Date: 20090116
  Transmission Date: 20090719
  Serious: Yes (Other)
  Sender: FDA-Public Use
  Company Number: DE-JNJFOC-20090101762

PATIENT
  Age: 94 Year
  Sex: Female

DRUGS (2)
  1. DURAGESIC-100 [Suspect]
     Indication: ARTHRALGIA
     Route: 062
  2. TRAMADOL HCL [Concomitant]
     Route: 065

REACTIONS (3)
  - ANGINA PECTORIS [None]
  - CONFUSIONAL STATE [None]
  - RESTLESSNESS [None]
